FAERS Safety Report 11441078 (Version 1)
Quarter: 2015Q3

REPORT INFORMATION
  Report Type: Spontaneous
  Country: US (occurrence: US)
  Receive Date: 20150821
  Receipt Date: 20150821
  Transmission Date: 20151125
  Serious: Yes (Other)
  Sender: FDA-Public Use
  Company Number: US-ELI_LILLY_AND_COMPANY-US200802002710

PATIENT
  Age: 72 Year
  Sex: Male

DRUGS (10)
  1. KLONOPIN [Concomitant]
     Active Substance: CLONAZEPAM
  2. COUMADIN [Concomitant]
     Active Substance: WARFARIN SODIUM
  3. SOTALOL. [Concomitant]
     Active Substance: SOTALOL
  4. HYDROCHLOROTHIAZIDE. [Concomitant]
     Active Substance: HYDROCHLOROTHIAZIDE
  5. LIPITOR [Concomitant]
     Active Substance: ATORVASTATIN CALCIUM
  6. CYMBALTA [Suspect]
     Active Substance: DULOXETINE HYDROCHLORIDE
     Dosage: 1 D/F, UNK
  7. METFORMIN [Concomitant]
     Active Substance: METFORMIN HYDROCHLORIDE
  8. NEURONTIN [Concomitant]
     Active Substance: GABAPENTIN
  9. VIAGRA [Concomitant]
     Active Substance: SILDENAFIL CITRATE
  10. CYMBALTA [Suspect]
     Active Substance: DULOXETINE HYDROCHLORIDE
     Indication: MAJOR DEPRESSION
     Dosage: 90 MG, DAILY (1/D)
     Dates: start: 200710

REACTIONS (6)
  - Drug ineffective [Not Recovered/Not Resolved]
  - Blood pressure systolic increased [Unknown]
  - Vision blurred [Unknown]
  - Weight increased [Unknown]
  - Haemorrhage [Unknown]
  - Upper gastrointestinal haemorrhage [Unknown]

NARRATIVE: CASE EVENT DATE: 2007
